FAERS Safety Report 9818542 (Version 2)
Quarter: 2014Q1

REPORT INFORMATION
  Report Type: Spontaneous
  Country: DE (occurrence: DE)
  Receive Date: 20140115
  Receipt Date: 20140115
  Transmission Date: 20141002
  Serious: Yes (Other)
  Sender: FDA-Public Use
  Company Number: DE-PFIZER INC-2013287137

PATIENT
  Age: 68 Year
  Sex: Male

DRUGS (2)
  1. CAVERJECT IMPULSE [Suspect]
     Indication: ERECTILE DYSFUNCTION
     Dosage: 10/12 UG
     Route: 011
     Dates: start: 201206
  2. CAVERJECT IMPULSE [Suspect]
     Dosage: 20 UG
     Route: 011

REACTIONS (2)
  - Penile size reduced [Not Recovered/Not Resolved]
  - Penile curvature [Not Recovered/Not Resolved]
